FAERS Safety Report 9420603 (Version 1)
Quarter: 2013Q3

REPORT INFORMATION
  Report Type: Spontaneous
  Country: US (occurrence: US)
  Receive Date: 20130725
  Receipt Date: 20130725
  Transmission Date: 20140515
  Serious: No
  Sender: FDA-Public Use
  Company Number: US-ABBOTT-13P-163-1103677-00

PATIENT
  Age: 61 Year
  Sex: Female

DRUGS (2)
  1. SYNTHROID [Suspect]
     Indication: PRODUCT USED FOR UNKNOWN INDICATION
     Dates: end: 20130502
  2. LEVOTHYROXIN [Suspect]
     Indication: PRODUCT USED FOR UNKNOWN INDICATION
     Dates: start: 2013

REACTIONS (10)
  - Swelling [Unknown]
  - Psychomotor hyperactivity [Unknown]
  - Anger [Unknown]
  - Compulsions [Unknown]
  - Speech disorder [Unknown]
  - Hyperthyroidism [Unknown]
  - Urticaria [Unknown]
  - Dysphagia [Unknown]
  - Mood altered [Unknown]
  - Oropharyngeal pain [Unknown]
